FAERS Safety Report 16332540 (Version 4)
Quarter: 2019Q4

REPORT INFORMATION
  Report Type: Spontaneous
  Country: US (occurrence: US)
  Receive Date: 20190520
  Receipt Date: 20191226
  Transmission Date: 20200122
  Serious: No
  Sender: FDA-Public Use
  Company Number: US-PFIZER INC-2019209518

PATIENT
  Age: 48 Year
  Sex: Male
  Weight: 152.41 kg

DRUGS (4)
  1. LYRICA [Suspect]
     Active Substance: PREGABALIN
     Dosage: 600 MG, 2X/DAY (TWO 300 MG CAPSULES TWICE A DAY BY MOUTH)
     Route: 048
  2. LYRICA [Suspect]
     Active Substance: PREGABALIN
     Dosage: 600 MG, 2X/DAY, (2 CAPS BY MOUTH TWICE A DAY)
     Route: 048
  3. LYRICA [Suspect]
     Active Substance: PREGABALIN
     Indication: NEUROPATHY PERIPHERAL
     Dosage: UNK
     Route: 048
  4. LYRICA [Suspect]
     Active Substance: PREGABALIN
     Dosage: 600 MG, 2X/DAY
     Route: 048

REACTIONS (2)
  - Prescribed overdose [Unknown]
  - Drug ineffective [Unknown]
